FAERS Safety Report 19857622 (Version 2)
Quarter: 2021Q4

REPORT INFORMATION
  Report Type: Spontaneous
  Country: IT (occurrence: IT)
  Receive Date: 20210920
  Receipt Date: 20211112
  Transmission Date: 20220303
  Serious: Yes (Other)
  Sender: FDA-Public Use
  Company Number: IT-NOVARTISPH-NVSC2021IT202087

PATIENT
  Age: 20 Year
  Sex: Female

DRUGS (14)
  1. ACETAMINOPHEN [Suspect]
     Active Substance: ACETAMINOPHEN
     Indication: Arthralgia
     Dosage: 5-6 G, QD
     Route: 065
  2. ACETAMINOPHEN [Suspect]
     Active Substance: ACETAMINOPHEN
     Indication: Pyrexia
     Dosage: 1-2 G, QD
     Route: 065
  3. ACETAMINOPHEN [Suspect]
     Active Substance: ACETAMINOPHEN
     Indication: Still^s disease
  4. PREDNISONE [Suspect]
     Active Substance: PREDNISONE
     Indication: Arthralgia
     Dosage: 15 MG, QD
     Route: 065
  5. PREDNISONE [Suspect]
     Active Substance: PREDNISONE
     Indication: Pyrexia
     Dosage: 7.5 MG, QD
     Route: 065
  6. PREDNISONE [Suspect]
     Active Substance: PREDNISONE
     Indication: Still^s disease
  7. CERTOLIZUMAB PEGOL [Suspect]
     Active Substance: CERTOLIZUMAB PEGOL
     Indication: Still^s disease
     Dosage: UNK, Q2MO
     Route: 058
  8. CERTOLIZUMAB PEGOL [Suspect]
     Active Substance: CERTOLIZUMAB PEGOL
     Dosage: UNK, EV 2 WEEKS (QOW)
     Route: 065
  9. GLUTATHIONE [Suspect]
     Active Substance: GLUTATHIONE
     Indication: Transaminases increased
     Dosage: UNK UNK, UNKNOWN
     Route: 065
  10. GLUTATHIONE [Suspect]
     Active Substance: GLUTATHIONE
     Indication: Coagulopathy
  11. URSODIOL [Suspect]
     Active Substance: URSODIOL
     Indication: Transaminases increased
     Dosage: UNK UNK, UNKNOWN
     Route: 065
  12. URSODIOL [Suspect]
     Active Substance: URSODIOL
     Indication: Coagulopathy
  13. ACETYLCYSTEINE [Suspect]
     Active Substance: ACETYLCYSTEINE
     Indication: Transaminases increased
     Dosage: UNK UNK, UNKNOWN
     Route: 065
  14. ACETYLCYSTEINE [Suspect]
     Active Substance: ACETYLCYSTEINE
     Indication: Coagulopathy

REACTIONS (2)
  - Premature delivery [Unknown]
  - Maternal exposure during pregnancy [Unknown]
